FAERS Safety Report 4530395-X (Version None)
Quarter: 2004Q4

REPORT INFORMATION
  Report Type: 
  Country: None (occurrence: None)
  Receive Date: 20041215
  Receipt Date: 20041206
  Transmission Date: 20050328
  Serious: Yes (Hospitalization, Disabling, Other)
  Sender: FDA-Public Use
  Company Number: 2004-12-0303

PATIENT
  Age: 69 Year
  Sex: Female

DRUGS (2)
  1. BECLOMETHASONE DIPROPIONATE ORAL AEROSOL  ^VANCERIL^ [Suspect]
     Indication: BRONCHITIS CHRONIC
     Dosage: 0.15MG QD ORAL AER INH
     Route: 055
  2. TERBUTALINE [Concomitant]

REACTIONS (8)
  - FEMORAL NECK FRACTURE [None]
  - JOINT RANGE OF MOTION DECREASED [None]
  - NECROSIS [None]
  - OSTEONECROSIS [None]
  - PAIN [None]
  - THROMBOSIS [None]
  - TRAUMATIC FRACTURE [None]
  - TUMOUR MARKER INCREASED [None]
